FAERS Safety Report 15017740 (Version 1)
Quarter: 2018Q2

REPORT INFORMATION
  Report Type: Spontaneous
  Country: ZA (occurrence: ZA)
  Receive Date: 20180615
  Receipt Date: 20180615
  Transmission Date: 20180711
  Serious: Yes (Hospitalization)
  Sender: FDA-Public Use
  Company Number: ZA-PFIZER INC-2018240478

PATIENT
  Age: 30 Year
  Sex: Male

DRUGS (4)
  1. AMILORETIC /00206601/ [Suspect]
     Active Substance: AMILORIDE HYDROCHLORIDE\HYDROCHLOROTHIAZIDE
     Dosage: 5/50 MG
  2. ASPAVOR [Suspect]
     Active Substance: ATORVASTATIN
     Dosage: 20 MG, UNK
  3. ENAP /00574902/ [Suspect]
     Active Substance: ENALAPRIL MALEATE
     Dosage: 5 MG, UNK
  4. ASTHAVENT /00139501/ [Suspect]
     Active Substance: ALBUTEROL
     Dosage: 100 UG, UNK

REACTIONS (1)
  - Neoplasm malignant [Recovering/Resolving]
